FAERS Safety Report 24768355 (Version 1)
Quarter: 2024Q4

REPORT INFORMATION
  Report Type: Spontaneous
  Country: GB (occurrence: GB)
  Receive Date: 20241223
  Receipt Date: 20241223
  Transmission Date: 20250115
  Serious: Yes (Life-Threatening)
  Sender: GLAXOSMITHKLINE
  Company Number: None

PATIENT

DRUGS (12)
  1. ANORO ELLIPTA [Suspect]
     Active Substance: UMECLIDINIUM BROMIDE\VILANTEROL TRIFENATATE
     Indication: Ill-defined disorder
     Dosage: UNK
     Route: 065
     Dates: start: 20241220
  2. QUININE SULFATE [Concomitant]
     Active Substance: QUININE SULFATE
     Indication: Ill-defined disorder
     Dosage: USE AS DIRECTED
     Route: 065
     Dates: start: 20240925, end: 20240926
  3. ZOPICLONE [Concomitant]
     Active Substance: ZOPICLONE
     Indication: Ill-defined disorder
     Dosage: 1 DF, QD (TAKE ONE AT NIGHT)
     Route: 065
     Dates: start: 20240925, end: 20241002
  4. NITROGLYCERIN [Concomitant]
     Active Substance: NITROGLYCERIN
     Indication: Ill-defined disorder
     Dosage: 1 PUFF(S) (ONE PUFF AS NEEDED)
     Route: 065
     Dates: start: 20241028, end: 20241111
  5. ALBUTEROL [Concomitant]
     Active Substance: ALBUTEROL
     Indication: Ill-defined disorder
     Dosage: INHALE 1-2 DOSES AS NEEDED
     Route: 065
     Dates: start: 20241028, end: 20241125
  6. DOXYCYCLINE [Concomitant]
     Active Substance: DOXYCYCLINE
     Indication: Ill-defined disorder
     Dosage: UNK UNK, QD, TWO NOW THEN ONE DAILY
     Route: 065
     Dates: start: 20241129, end: 20241206
  7. BISOPROLOL [Concomitant]
     Active Substance: BISOPROLOL
     Indication: Ill-defined disorder
     Dosage: 1 DF, QD
     Route: 065
     Dates: start: 20241217
  8. ALBUTEROL [Concomitant]
     Active Substance: ALBUTEROL
     Indication: Ill-defined disorder
     Dosage: INHALE 1-2 DOSES AS NEEDED
     Route: 055
     Dates: start: 20241217
  9. DICLOFENAC DIETHYLAMINE [Concomitant]
     Active Substance: DICLOFENAC DIETHYLAMINE
     Indication: Ill-defined disorder
     Dosage: UNK UNK, BID, APPLY TWICE DAILY
     Route: 065
     Dates: start: 20240621
  10. AMITRIPTYLINE HYDROCHLORIDE [Concomitant]
     Active Substance: AMITRIPTYLINE HYDROCHLORIDE
     Indication: Ill-defined disorder
     Dosage: 1 DF, QD
     Route: 065
     Dates: start: 20240910
  11. ASPIRIN [Concomitant]
     Active Substance: ASPIRIN
     Indication: Ill-defined disorder
     Dosage: 1 DF, QD
     Route: 065
     Dates: start: 20240925
  12. UMECLIDINIUM BROMIDE\VILANTEROL TRIFENATATE [Concomitant]
     Active Substance: UMECLIDINIUM BROMIDE\VILANTEROL TRIFENATATE
     Indication: Ill-defined disorder
     Dosage: 1 DF, QD, INHALE 1 DOSE DAILY
     Route: 055
     Dates: start: 20241114, end: 20241220

REACTIONS (2)
  - Rash [Recovered/Resolved]
  - Swollen tongue [Unknown]

NARRATIVE: CASE EVENT DATE: 20241220
